FAERS Safety Report 12507374 (Version 1)
Quarter: 2016Q2

REPORT INFORMATION
  Report Type: Report from Study
  Country: US (occurrence: US)
  Receive Date: 20160629
  Receipt Date: 20160629
  Transmission Date: 20160815
  Serious: Yes (Hospitalization, Other)
  Sender: FDA-Public Use
  Company Number: US-BIOGEN-2008BI018639

PATIENT
  Age: 46 Year
  Sex: Male
  Weight: 59.02 kg

DRUGS (5)
  1. TYSABRI [Suspect]
     Active Substance: NATALIZUMAB
     Indication: MULTIPLE SCLEROSIS
     Route: 065
     Dates: start: 20050105
  2. TYSABRI [Suspect]
     Active Substance: NATALIZUMAB
     Route: 042
     Dates: start: 20060817
  3. KLONOPIN [Concomitant]
     Active Substance: CLONAZEPAM
     Indication: PRODUCT USED FOR UNKNOWN INDICATION
     Route: 065
  4. SOLU-MEDROL [Concomitant]
     Active Substance: METHYLPREDNISOLONE SODIUM SUCCINATE
     Indication: PRODUCT USED FOR UNKNOWN INDICATION
     Route: 065
     Dates: start: 20070116, end: 20070118
  5. TYSABRI [Suspect]
     Active Substance: NATALIZUMAB
     Route: 042
     Dates: start: 20050115, end: 200502

REACTIONS (9)
  - Weight decreased [Not Recovered/Not Resolved]
  - Colon adenoma [Recovered/Resolved]
  - Adenocarcinoma of colon [Recovered/Resolved]
  - Small intestine carcinoma [Recovered/Resolved]
  - Epilepsy [Not Recovered/Not Resolved]
  - Pain [Recovered/Resolved]
  - Basal cell carcinoma [Recovered/Resolved]
  - Contusion [Not Recovered/Not Resolved]
  - Poor venous access [Recovered/Resolved]

NARRATIVE: CASE EVENT DATE: 2008
